FAERS Safety Report 20519432 (Version 1)
Quarter: 2022Q1

REPORT INFORMATION
  Report Type: Spontaneous
  Country: NO (occurrence: NO)
  Receive Date: 20220225
  Receipt Date: 20220225
  Transmission Date: 20220424
  Serious: Yes (Other)
  Sender: FDA-Public Use
  Company Number: None

PATIENT
  Age: 24 Year
  Sex: Male

DRUGS (1)
  1. LAMICTAL [Suspect]
     Active Substance: LAMOTRIGINE
     Indication: Affective disorder
     Dosage: UNK, QD (25 MG EVERY MORNING FOR 2 WEEKS, 50 MG EVERY MORNING FOR 2 WEEKS)
     Route: 048
     Dates: start: 20211015

REACTIONS (6)
  - Suicidal ideation [Not Recovered/Not Resolved]
  - Irritability [Unknown]
  - Insomnia [Not Recovered/Not Resolved]
  - Self-injurious ideation [Unknown]
  - Memory impairment [Not Recovered/Not Resolved]
  - Intrusive thoughts [Unknown]

NARRATIVE: CASE EVENT DATE: 20211001
